FAERS Safety Report 7370708-7 (Version None)
Quarter: 2011Q1

REPORT INFORMATION
  Report Type: 
  Country: None (occurrence: None)
  Receive Date: 20110323
  Receipt Date: 20110314
  Transmission Date: 20110831
  Serious: No
  Sender: FDA-Public Use
  Company Number: US-BAYER-2011-023719

PATIENT
  Sex: Female
  Weight: 64 kg

DRUGS (4)
  1. PROTONIX [Concomitant]
  2. DILTIAZEM [Concomitant]
  3. METAMUCIL-2 [Concomitant]
  4. ALEVE (CAPLET) [Suspect]
     Indication: PAIN
     Dosage: 1 DF, UNK
     Route: 048
     Dates: start: 20110314

REACTIONS (1)
  - FREQUENT BOWEL MOVEMENTS [None]
